FAERS Safety Report 15295627 (Version 2)
Quarter: 2020Q1

REPORT INFORMATION
  Report Type: Spontaneous
  Country: US (occurrence: US)
  Receive Date: 20180820
  Receipt Date: 20200110
  Transmission Date: 20200409
  Serious: No
  Sender: FDA-Public Use
  Company Number: US-SA-2018SA227239

PATIENT
  Age: 47 Year
  Sex: Female

DRUGS (2)
  1. FABRAZYME [Suspect]
     Active Substance: AGALSIDASE BETA
     Indication: FABRY^S DISEASE
     Dosage: 100 MG, QOW
     Route: 041
     Dates: start: 201705
  2. FABRAZYME [Suspect]
     Active Substance: AGALSIDASE BETA
     Dosage: 100 MG, QOW
     Route: 041

REACTIONS (1)
  - Malaise [Unknown]
